FAERS Safety Report 15014681 (Version 1)
Quarter: 2018Q2

REPORT INFORMATION
  Report Type: Spontaneous
  Country: US (occurrence: US)
  Receive Date: 20180615
  Receipt Date: 20180615
  Transmission Date: 20180711
  Serious: Yes (Hospitalization)
  Sender: FDA-Public Use
  Company Number: US-STRIDES ARCOLAB LIMITED-2018SP004899

PATIENT

DRUGS (1)
  1. HYDRALAZINE HCL [Suspect]
     Active Substance: HYDRALAZINE HYDROCHLORIDE
     Indication: PRODUCT USED FOR UNKNOWN INDICATION
     Dosage: UNK
     Route: 065

REACTIONS (8)
  - Antiphospholipid antibodies positive [Recovered/Resolved]
  - Granulomatosis with polyangiitis [Recovered/Resolved]
  - Acute kidney injury [Recovered/Resolved]
  - Blood creatinine increased [Recovered/Resolved]
  - Proteinuria [Recovered/Resolved]
  - Haematuria [Recovered/Resolved]
  - Glomerulonephritis [Recovered/Resolved]
  - Anti-neutrophil cytoplasmic antibody positive vasculitis [Recovered/Resolved]
